FAERS Safety Report 5335314-4 (Version None)
Quarter: 2007Q2

REPORT INFORMATION
  Report Type: 
  Country: None (occurrence: None)
  Receive Date: 20070525
  Receipt Date: 20070517
  Transmission Date: 20071010
  Serious: Yes (Hospitalization, Other)
  Sender: FDA-Public Use
  Company Number: ES-PFIZER INC-2007034869

PATIENT
  Sex: Female

DRUGS (3)
  1. PREGABALIN [Suspect]
     Indication: CARPAL TUNNEL SYNDROME
     Route: 048
     Dates: start: 20061115, end: 20061231
  2. OMEPRAZOLE [Concomitant]
     Route: 048
  3. CARDYL [Concomitant]
     Route: 048

REACTIONS (2)
  - SYNCOPE [None]
  - THERMAL BURN [None]
